FAERS Safety Report 10186532 (Version 2)
Quarter: 2015Q4

REPORT INFORMATION
  Report Type: Report from Study
  Country: US (occurrence: US)
  Receive Date: 20140521
  Receipt Date: 20151204
  Transmission Date: 20160304
  Serious: Yes (Hospitalization)
  Sender: FDA-Public Use
  Company Number: PHHY2014US061603

PATIENT
  Age: 60 Year
  Sex: Male

DRUGS (21)
  1. CLONIDINE. [Concomitant]
     Active Substance: CLONIDINE
     Dosage: 1 DF, Q4H (AS NEEDED) IF SBP} 180 AND SDP}100 (0.1 MG)
     Route: 048
  2. PMS-PROMETHAZINE [Concomitant]
     Indication: NAUSEA
     Dosage: 1 DF, Q8H (AS NEEDED)
     Route: 048
  3. LUCENTIS [Suspect]
     Active Substance: RANIBIZUMAB
     Indication: RETINAL OEDEMA
     Dosage: UNK
  4. LUCENTIS [Suspect]
     Active Substance: RANIBIZUMAB
     Indication: RETINAL VEIN OCCLUSION
     Dosage: UNK (RIGHT EYE)
     Dates: start: 20110712
  5. ACETAMINOPHEN. [Concomitant]
     Active Substance: ACETAMINOPHEN
     Indication: PRODUCT USED FOR UNKNOWN INDICATION
     Dosage: 1 DF, Q6H (PRN)
     Route: 048
  6. LUCENTIS [Suspect]
     Active Substance: RANIBIZUMAB
     Indication: DIABETIC RETINOPATHY
     Dosage: UNK
     Dates: start: 20110607, end: 20110607
  7. LUCENTIS [Suspect]
     Active Substance: RANIBIZUMAB
     Dosage: UNK (RIGHT EYE)
     Dates: start: 20120119
  8. ISOPHANE INSULIN [Concomitant]
     Active Substance: INSULIN NOS
     Indication: PRODUCT USED FOR UNKNOWN INDICATION
     Dosage: 22 IU, AM
     Route: 058
  9. BENADRYL [Concomitant]
     Active Substance: DIPHENHYDRAMINE HYDROCHLORIDE
     Indication: PRODUCT USED FOR UNKNOWN INDICATION
     Dosage: 2 DF (2 CAPS), Q6H
     Route: 048
  10. EPIPEN [Concomitant]
     Active Substance: EPINEPHRINE
     Indication: PRODUCT USED FOR UNKNOWN INDICATION
     Dosage: 0.3 MG, PRN
     Route: 030
  11. LUCENTIS [Suspect]
     Active Substance: RANIBIZUMAB
     Dosage: UNK (RIGHT EYE)
     Dates: start: 20111117, end: 20111117
  12. CLONIDINE. [Concomitant]
     Active Substance: CLONIDINE
     Indication: PRODUCT USED FOR UNKNOWN INDICATION
     Dosage: 0.1 MG, BID
     Route: 048
  13. ZYRTEC [Concomitant]
     Active Substance: CETIRIZINE HYDROCHLORIDE
     Indication: PRODUCT USED FOR UNKNOWN INDICATION
     Dosage: UNK
     Route: 048
  14. AMLODIPINE [Concomitant]
     Active Substance: AMLODIPINE BESYLATE
     Indication: HYPERTENSION
     Dosage: 0.5 DF, Q12H
     Route: 048
  15. LUCENTIS [Suspect]
     Active Substance: RANIBIZUMAB
     Indication: DIABETIC RETINAL OEDEMA
     Dosage: 0.5 MG, QMO
     Route: 031
     Dates: start: 20110503
  16. RANITIDINE [Suspect]
     Active Substance: RANITIDINE\RANITIDINE HYDROCHLORIDE
     Indication: PRODUCT USED FOR UNKNOWN INDICATION
     Dosage: UNK
     Route: 065
  17. LUCENTIS [Suspect]
     Active Substance: RANIBIZUMAB
     Dosage: UNK (RIGHT EYE)
     Dates: start: 20111220
  18. INSULIN REGULAR HM [Concomitant]
     Active Substance: INSULIN NOS
     Indication: PRODUCT USED FOR UNKNOWN INDICATION
     Dosage: 14 IU, 30 MINUTES BEFORE BREAKFAST
     Route: 058
  19. INSULIN REGULAR HM [Concomitant]
     Active Substance: INSULIN NOS
     Dosage: 9 IU, 30 MINUTES BEFORE DINNER
     Route: 058
  20. ISOPHANE INSULIN [Concomitant]
     Active Substance: INSULIN NOS
     Dosage: 9 IU, QHS
     Route: 058
  21. PMS-PROMETHAZINE [Concomitant]
     Indication: VOMITING

REACTIONS (14)
  - Vomiting [Unknown]
  - Retinal vein occlusion [Unknown]
  - Retinal neovascularisation [Unknown]
  - Hypertensive crisis [Unknown]
  - Visual impairment [Unknown]
  - Hypoglycaemia [Unknown]
  - Metamorphopsia [Unknown]
  - Nephrolithiasis [Unknown]
  - Cystoid macular oedema [Unknown]
  - Visual acuity reduced [Unknown]
  - Drug hypersensitivity [Unknown]
  - Presyncope [Unknown]
  - Blood pressure inadequately controlled [Unknown]
  - Malaise [Unknown]

NARRATIVE: CASE EVENT DATE: 20110607
